FAERS Safety Report 12426005 (Version 1)
Quarter: 2016Q2

REPORT INFORMATION
  Report Type: Spontaneous
  Country: US (occurrence: US)
  Receive Date: 20160601
  Receipt Date: 20160601
  Transmission Date: 20160815
  Serious: Yes (Death, Other)
  Sender: FDA-Public Use
  Company Number: US-CELGENEUS-USA-2015055348

PATIENT

DRUGS (6)
  1. EPIRUBICIN [Suspect]
     Active Substance: EPIRUBICIN
     Indication: INFLAMMATORY CARCINOMA OF THE BREAST
     Route: 065
  2. CYCLOPHOSPHAMIDE. [Suspect]
     Active Substance: CYCLOPHOSPHAMIDE
     Indication: INFLAMMATORY CARCINOMA OF THE BREAST
     Route: 065
  3. CARBOPLATIN. [Suspect]
     Active Substance: CARBOPLATIN
     Indication: INFLAMMATORY CARCINOMA OF THE BREAST
     Dosage: AUC 2
     Route: 065
  4. 5-FLUOROURACIL [Suspect]
     Active Substance: FLUOROURACIL
     Indication: INFLAMMATORY CARCINOMA OF THE BREAST
     Route: 065
  5. ABRAXANE [Suspect]
     Active Substance: PACLITAXEL
     Indication: INFLAMMATORY CARCINOMA OF THE BREAST
     Dosage: 100 MILLIGRAM/SQ. METER
     Route: 041
  6. PANITUMUMAB [Suspect]
     Active Substance: PANITUMUMAB
     Indication: INFLAMMATORY CARCINOMA OF THE BREAST
     Route: 065

REACTIONS (9)
  - Fatigue [Unknown]
  - Pleuritic pain [Unknown]
  - Infection [Unknown]
  - Stomatitis [Unknown]
  - Death [Fatal]
  - Inflammatory carcinoma of the breast [Unknown]
  - Bone marrow failure [Unknown]
  - Rash [Unknown]
  - Decreased appetite [Unknown]
